FAERS Safety Report 10377695 (Version 2)
Quarter: 2014Q3

REPORT INFORMATION
  Report Type: Spontaneous
  Country: JP (occurrence: JP)
  Receive Date: 20140812
  Receipt Date: 20140904
  Transmission Date: 20150326
  Serious: Yes (Hospitalization)
  Sender: FDA-Public Use
  Company Number: PHHY2014JP098878

PATIENT
  Age: 81 Year
  Sex: Female

DRUGS (2)
  1. LOCHOL [Suspect]
     Active Substance: FLUVASTATIN SODIUM
     Indication: HYPERCHOLESTEROLAEMIA
     Dosage: 30 MG, DAILY
     Route: 048
  2. LOCHOL [Suspect]
     Active Substance: FLUVASTATIN SODIUM
     Dosage: 20 MG, DAILY
     Route: 048

REACTIONS (1)
  - Intervertebral disc protrusion [Unknown]
